FAERS Safety Report 14347625 (Version 3)
Quarter: 2018Q4

REPORT INFORMATION
  Report Type: Spontaneous
  Country: US (occurrence: US)
  Receive Date: 20180103
  Receipt Date: 20181109
  Transmission Date: 20190204
  Serious: No
  Sender: FDA-Public Use
  Company Number: US-009507513-1712USA009357

PATIENT
  Age: 59 Year
  Sex: Male

DRUGS (3)
  1. IPILIMUMAB [Concomitant]
     Active Substance: IPILIMUMAB
     Indication: NEUROENDOCRINE CARCINOMA OF THE SKIN
     Dosage: UNK
  2. KEYTRUDA [Suspect]
     Active Substance: PEMBROLIZUMAB
     Indication: NEUROENDOCRINE CARCINOMA OF THE SKIN
     Dosage: UNK
  3. CYTOTOXIC T LYMPHOCYTES [Concomitant]
     Indication: NEUROENDOCRINE CARCINOMA OF THE SKIN
     Dosage: UNK

REACTIONS (2)
  - Drug resistance [Unknown]
  - Off label use [Unknown]
